FAERS Safety Report 5087643-X (Version None)
Quarter: 2006Q3

REPORT INFORMATION
  Report Type: 
  Country: None (occurrence: None)
  Receive Date: 20060727
  Receipt Date: 20060406
  Transmission Date: 20061208
  Serious: Yes (Other)
  Sender: FDA-Public Use
  Company Number: 2006049440

PATIENT
  Age: 28 Year
  Sex: Male
  Weight: 181.4388 kg

DRUGS (5)
  1. LYRICA [Suspect]
     Indication: RADICULOPATHY
     Dosage: 150 MG (75 MG, 2 IN 1 D), ORAL
     Route: 048
     Dates: start: 20060406
  2. PAXIL [Concomitant]
  3. KLONOPIN (CLONAZAPEM) [Concomitant]
  4. DIOVAN HCT [Concomitant]
  5. DESYREL [Concomitant]

REACTIONS (2)
  - PAIN [None]
  - VISION BLURRED [None]
